FAERS Safety Report 17326365 (Version 1)
Quarter: 2020Q1

REPORT INFORMATION
  Report Type: Spontaneous
  Country: US (occurrence: US)
  Receive Date: 20200127
  Receipt Date: 20200127
  Transmission Date: 20200409
  Serious: No
  Sender: FDA-Public Use
  Company Number: US-PFIZER INC-2020037371

PATIENT
  Age: 67 Year
  Sex: Female
  Weight: 232 kg

DRUGS (1)
  1. IBRANCE [Suspect]
     Active Substance: PALBOCICLIB
     Indication: BREAST CANCER
     Dosage: 125 MG, CYCLIC, [D [DAY] 1- D 21 Q [EVERY] 28 DAYS]
     Route: 048
     Dates: start: 20200116

REACTIONS (1)
  - Headache [Unknown]
